FAERS Safety Report 6771837-9 (Version None)
Quarter: 2010Q2

REPORT INFORMATION
  Report Type: 
  Country: None (occurrence: None)
  Receive Date: 20100616
  Receipt Date: 20100602
  Transmission Date: 20101027
  Serious: Yes (Hospitalization, Other)
  Sender: FDA-Public Use
  Company Number: BR-MEDIMMUNE-MEDI-0011288

PATIENT
  Sex: Male
  Weight: 2.99 kg

DRUGS (1)
  1. SYNAGIS [Suspect]
     Route: 030
     Dates: start: 20100510, end: 20100510

REACTIONS (2)
  - NOSOCOMIAL INFECTION [None]
  - PANCREATIC DISORDER [None]
